FAERS Safety Report 7402818-X (Version None)
Quarter: 2011Q2

REPORT INFORMATION
  Report Type: 
  Country: None (occurrence: None)
  Receive Date: 20110408
  Receipt Date: 20110328
  Transmission Date: 20111010
  Serious: Yes (Other)
  Sender: FDA-Public Use
  Company Number: PHHY2011MX26332

PATIENT
  Age: 65 Year
  Sex: Female

DRUGS (1)
  1. RASILEZ HCT [Suspect]
     Indication: HYPERTENSION
     Dosage: 300/12.5MG DAILY
     Route: 048

REACTIONS (3)
  - VASODILATATION [None]
  - HEADACHE [None]
  - BLOOD PRESSURE INCREASED [None]
